FAERS Safety Report 22533912 (Version 2)
Quarter: 2023Q2

REPORT INFORMATION
  Report Type: Spontaneous
  Country: CA (occurrence: CA)
  Receive Date: 20230608
  Receipt Date: 20230614
  Transmission Date: 20230721
  Serious: Yes (Hospitalization)
  Sender: FDA-Public Use
  Company Number: CA-CELLTRION INC.-2022CA014167

PATIENT

DRUGS (8)
  1. INFLECTRA [Suspect]
     Active Substance: INFLIXIMAB-DYYB
     Indication: Crohn^s disease
     Dosage: 900 MG, REINDUCTION WEEKS 0, 2 AND 6 THEN MAINTENANCE EVERY 5 WEEKS
     Route: 042
     Dates: start: 20220930
  2. INFLECTRA [Suspect]
     Active Substance: INFLIXIMAB-DYYB
     Dosage: 900 MG, REINDUCTION WEEKS 0, 2 AND 6 THEN MAINTENANCE EVERY 5 WEEKS
     Route: 042
     Dates: start: 20221014
  3. INFLECTRA [Suspect]
     Active Substance: INFLIXIMAB-DYYB
     Dosage: 900 MG, REINDUCTION WEEKS 0, 2 AND 6 THEN MAINTENANCE EVERY 5 WEEKS
     Route: 042
     Dates: start: 20221209
  4. INFLECTRA [Suspect]
     Active Substance: INFLIXIMAB-DYYB
     Dosage: 900 MG, REINDUCTION WEEKS 0, 2 AND 6 THEN MAINTENANCE EVERY 5 WEEKS
     Route: 042
     Dates: start: 20230111
  5. INFLECTRA [Suspect]
     Active Substance: INFLIXIMAB-DYYB
     Dosage: 900 MG EVERY 5 WEEKS
     Route: 042
     Dates: start: 20230428
  6. INFLECTRA [Suspect]
     Active Substance: INFLIXIMAB-DYYB
     Dosage: 900 MG EVERY 5 WEEKS
     Route: 042
     Dates: start: 20230428
  7. DIPHENHYDRAMINE [Concomitant]
     Active Substance: DIPHENHYDRAMINE
     Indication: Premedication
     Dosage: 50 MG
     Route: 042
  8. HYDROCORTISONE [Concomitant]
     Active Substance: HYDROCORTISONE
     Indication: Premedication
     Dosage: 100 MG

REACTIONS (14)
  - Limb injury [Unknown]
  - Accident at work [Unknown]
  - Off label use [Unknown]
  - Off label use [Unknown]
  - Intentional product use issue [Unknown]
  - Inappropriate schedule of product administration [Unknown]
  - Weight increased [Unknown]
  - COVID-19 [Recovering/Resolving]
  - Psoriasis [Unknown]
  - Fall [Unknown]
  - Gait disturbance [Unknown]
  - Arthralgia [Unknown]
  - Rash erythematous [Unknown]
  - Rash pruritic [Unknown]

NARRATIVE: CASE EVENT DATE: 20220101
